FAERS Safety Report 13737586 (Version 2)
Quarter: 2018Q2

REPORT INFORMATION
  Report Type: Spontaneous
  Country: US (occurrence: US)
  Receive Date: 20170710
  Receipt Date: 20180627
  Transmission Date: 20180711
  Serious: Yes (Hospitalization, Other)
  Sender: FDA-Public Use
  Company Number: US-SAOL THERAPEUTICS-2016SAO00644

PATIENT
  Age: 63 Year
  Sex: Male
  Weight: 80.73 kg

DRUGS (5)
  1. LIORESAL [Suspect]
     Active Substance: BACLOFEN
     Indication: MUSCLE SPASTICITY
     Dosage: 100.9 ?G\DAY
     Route: 037
     Dates: start: 20160901
  2. LIORESAL [Suspect]
     Active Substance: BACLOFEN
     Indication: MULTIPLE SCLEROSIS
  3. BACLOFEN. [Concomitant]
     Active Substance: BACLOFEN
     Route: 048
  4. VALIUM [Concomitant]
     Active Substance: DIAZEPAM
     Route: 048
  5. LIORESAL [Suspect]
     Active Substance: BACLOFEN
     Indication: PARAPARESIS
     Dosage: 341 ?G, \DAY
     Route: 037
     Dates: end: 20160901

REACTIONS (7)
  - Post lumbar puncture syndrome [Unknown]
  - Device malfunction [Recovered/Resolved]
  - Drug withdrawal syndrome [Recovering/Resolving]
  - Off label use [Unknown]
  - Muscle spasticity [Unknown]
  - Device dislocation [Recovered/Resolved]
  - Pain [Recovering/Resolving]

NARRATIVE: CASE EVENT DATE: 20160826
